FAERS Safety Report 15001654 (Version 1)
Quarter: 2018Q2

REPORT INFORMATION
  Report Type: Report from Study
  Country: DE (occurrence: DE)
  Receive Date: 20180612
  Receipt Date: 20180612
  Transmission Date: 20180711
  Serious: Yes (Life-Threatening, Hospitalization)
  Sender: FDA-Public Use
  Company Number: DE-AMGEN-DEUCT2018078702

PATIENT
  Age: 78 Year
  Sex: Female
  Weight: 68 kg

DRUGS (6)
  1. ENALAPRIL [Concomitant]
     Active Substance: ENALAPRIL
     Indication: HYPERTONIA
     Dosage: 20 MG, UNK
     Dates: start: 1998
  2. PACLITAXEL. [Suspect]
     Active Substance: PACLITAXEL
     Indication: BREAST CANCER
     Dosage: 125 MG/M2, D1, 8Q21
     Route: 065
     Dates: start: 20180517
  3. DENOSUMAB [Suspect]
     Active Substance: DENOSUMAB
     Indication: BREAST CANCER
     Dosage: 6 MG, Q3WK
     Route: 042
     Dates: start: 20180516
  4. PERTUZUMAB. [Suspect]
     Active Substance: PERTUZUMAB
     Indication: BREAST CANCER
     Dosage: 420 MG, DQQ21
     Route: 042
     Dates: start: 20170517
  5. ABP 980 (TRASTUZUMAB-BIOSIMILIAR) [Suspect]
     Active Substance: INVESTIGATIONAL BIOSIMILARS
     Indication: BREAST CANCER
     Dosage: 6 MG/KG, Q3WK
     Route: 042
     Dates: start: 20180517
  6. AMLODIPIN [Concomitant]
     Active Substance: AMLODIPINE BESYLATE
     Indication: HYPERTONIA
     Dosage: 5 MG, UNK
     Dates: start: 20180605

REACTIONS (1)
  - Hypertonia [Not Recovered/Not Resolved]

NARRATIVE: CASE EVENT DATE: 20180608
